FAERS Safety Report 18660681 (Version 1)
Quarter: 2020Q4

REPORT INFORMATION
  Report Type: Spontaneous
  Country: US (occurrence: US)
  Receive Date: 20201223
  Receipt Date: 20201223
  Transmission Date: 20210114
  Serious: No
  Sender: FDA-Public Use
  Company Number: None

PATIENT
  Age: 70 Year
  Sex: Male

DRUGS (2)
  1. ENBREL [Suspect]
     Active Substance: ETANERCEPT
     Indication: RHEUMATOID ARTHRITIS
     Route: 030
     Dates: start: 20200707, end: 20201223
  2. HEALTHBEACON [Suspect]
     Active Substance: DEVICE

REACTIONS (2)
  - Injection site hypersensitivity [None]
  - Therapy interrupted [None]

NARRATIVE: CASE EVENT DATE: 20201223
